FAERS Safety Report 14210739 (Version 2)
Quarter: 2017Q4

REPORT INFORMATION
  Report Type: Spontaneous
  Country: JP (occurrence: JP)
  Receive Date: 20171121
  Receipt Date: 20171207
  Transmission Date: 20180321
  Serious: No
  Sender: FDA-Public Use
  Company Number: JP-ELI_LILLY_AND_COMPANY-JP201711007256

PATIENT
  Age: 67 Year
  Sex: Male

DRUGS (4)
  1. BETANIS [Concomitant]
     Active Substance: MIRABEGRON
     Route: 048
  2. FEBURIC [Concomitant]
     Active Substance: FEBUXOSTAT
  3. ZALUTIA [Suspect]
     Active Substance: TADALAFIL
     Indication: BENIGN PROSTATIC HYPERPLASIA
     Dosage: 5 MG, DAILY
     Route: 048
  4. TELMISARTAN. [Concomitant]
     Active Substance: TELMISARTAN

REACTIONS (1)
  - Vision blurred [Unknown]
